FAERS Safety Report 6169043-4 (Version None)
Quarter: 2009Q2

REPORT INFORMATION
  Report Type: 
  Country: None (occurrence: None)
  Receive Date: 20090427
  Receipt Date: 20090417
  Transmission Date: 20091009
  Serious: Yes (Hospitalization)
  Sender: FDA-Public Use
  Company Number: BG-PFIZER INC-2009196247

PATIENT

DRUGS (7)
  1. BLINDED *PLACEBO [Suspect]
     Indication: COLORECTAL CANCER
     Dosage: 37.5 MG, 1X/DAY
     Route: 048
     Dates: start: 20080709, end: 20090406
  2. BLINDED SUNITINIB MALATE [Suspect]
     Indication: COLORECTAL CANCER
     Dosage: 37.5 MG, 1X/DAY
     Route: 048
     Dates: start: 20080709, end: 20090406
  3. IRINOTECAN HCL [Suspect]
     Indication: COLORECTAL CANCER
     Dosage: 268 MG, EVERY 2 WEEKS
     Route: 042
     Dates: start: 20080709, end: 20090323
  4. FLUOROURACIL [Suspect]
     Indication: COLORECTAL CANCER
     Dosage: 3571 MG, EVERY 2 WEEKS;
     Route: 042
     Dates: start: 20080709, end: 20090323
  5. FLUOROURACIL [Suspect]
     Dosage: 595 MG, EVERY 2 WEEKS;
     Route: 042
     Dates: start: 20080709, end: 20090325
  6. LEUCOVORIN CALCIUM [Suspect]
     Indication: COLORECTAL CANCER
     Dosage: 595 MG, EVERY 2 WEEKS;
     Route: 042
     Dates: start: 20080709, end: 20090323
  7. NEBIVOLOL [Concomitant]
     Dosage: UNK
     Dates: start: 20070901

REACTIONS (2)
  - DIARRHOEA [None]
  - ILEUS [None]
